FAERS Safety Report 9710317 (Version 1)
Quarter: 2013Q4

REPORT INFORMATION
  Report Type: Spontaneous
  Country: US (occurrence: US)
  Receive Date: 20131126
  Receipt Date: 20131126
  Transmission Date: 20140711
  Serious: No
  Sender: FDA-Public Use
  Company Number: US-PFIZER INC-2013333948

PATIENT
  Sex: Male

DRUGS (1)
  1. ADVIL [Suspect]
     Indication: HEADACHE
     Dosage: TWO TABLETS OF 200 MG TOGETHER AT A TIME AT TWO TIMES A DAY IN INTERVAL OF FOUR HOURS
     Route: 048

REACTIONS (2)
  - Drug ineffective [Unknown]
  - Memory impairment [Unknown]
